FAERS Safety Report 6304075-4 (Version None)
Quarter: 2009Q3

REPORT INFORMATION
  Report Type: 
  Country: None (occurrence: None)
  Receive Date: 20090810
  Receipt Date: 20090810
  Transmission Date: 20100115
  Serious: Yes (Other)
  Sender: FDA-Public Use
  Company Number: None

PATIENT
  Age: 48 Year
  Sex: Female
  Weight: 40.8237 kg

DRUGS (1)
  1. AMITIZA [Suspect]
     Indication: IRRITABLE BOWEL SYNDROME
     Dosage: 25MCG TWICE/DAILY PO
     Route: 048
     Dates: start: 20090727, end: 20090802

REACTIONS (2)
  - PRURITUS GENERALISED [None]
  - RASH [None]
